FAERS Safety Report 16230412 (Version 1)
Quarter: 2019Q2

REPORT INFORMATION
  Report Type: Spontaneous
  Country: US (occurrence: US)
  Receive Date: 20190319
  Receipt Date: 20190319
  Transmission Date: 20190711
  Serious: No
  Sender: FDA-Public Use
  Company Number: None

PATIENT
  Age: 77 Year
  Sex: Female
  Weight: 74.84 kg

DRUGS (10)
  1. OMEPAZOLE [Concomitant]
  2. VIT-D [Concomitant]
  3. 10 MCI OF TECHNETIUM-99M [Suspect]
     Active Substance: TECHNETIUM TC-99M
     Indication: CARDIAC STRESS TEST
     Dates: start: 20180920, end: 20180920
  4. HYDROXYCHLOROQUINE [Concomitant]
     Active Substance: HYDROXYCHLOROQUINE
  5. METFORMIN [Concomitant]
     Active Substance: METFORMIN HYDROCHLORIDE
  6. ALEVE [Concomitant]
     Active Substance: NAPROXEN SODIUM
  7. GEMFIBROZIL. [Concomitant]
     Active Substance: GEMFIBROZIL
  8. GLIPIZIDE. [Concomitant]
     Active Substance: GLIPIZIDE
  9. IRON [Concomitant]
     Active Substance: IRON
  10. MAGNESIUM [Concomitant]
     Active Substance: MAGNESIUM

REACTIONS (5)
  - Pruritus genital [None]
  - Rash erythematous [None]
  - Dysuria [None]
  - Pruritus generalised [None]
  - Hypersensitivity [None]

NARRATIVE: CASE EVENT DATE: 20180920
